FAERS Safety Report 7882030-0 (Version None)
Quarter: 2011Q4

REPORT INFORMATION
  Report Type: 
  Country: None (occurrence: None)
  Receive Date: 20111101
  Receipt Date: 20110607
  Transmission Date: 20120403
  Serious: No
  Sender: FDA-Public Use
  Company Number: US-AMGEN-USASP2011026928

PATIENT
  Age: 29 Year
  Sex: Female

DRUGS (1)
  1. ENBREL [Suspect]
     Indication: PSORIASIS
     Dosage: 50 MG, 2 TIMES/WK
     Route: 058
     Dates: start: 20030101

REACTIONS (5)
  - SINUS HEADACHE [None]
  - THROAT IRRITATION [None]
  - SINUS CONGESTION [None]
  - RHESUS INCOMPATIBILITY [None]
  - SEASONAL ALLERGY [None]
